FAERS Safety Report 17682615 (Version 1)
Quarter: 2020Q2

REPORT INFORMATION
  Report Type: Spontaneous
  Country: US (occurrence: US)
  Receive Date: 20200419
  Receipt Date: 20200419
  Transmission Date: 20200714
  Serious: No
  Sender: FDA-Public Use
  Company Number: US-TEVA-2020-US-1223276

PATIENT
  Sex: Male

DRUGS (3)
  1. QVAR [Suspect]
     Active Substance: BECLOMETHASONE DIPROPIONATE
     Indication: ASTHMA
     Route: 065
     Dates: start: 20180106
  2. INSULIN [Concomitant]
     Active Substance: INSULIN NOS
     Route: 065
  3. QVAR REDIHALER [Suspect]
     Active Substance: BECLOMETHASONE DIPROPIONATE
     Indication: ASTHMA
     Dosage: 1 PUFF ^ONCE DAILY IN THE MORNING^
     Route: 065
     Dates: start: 20200325

REACTIONS (4)
  - Dry throat [Unknown]
  - Dry mouth [Unknown]
  - Dyspnoea [Unknown]
  - Sensory loss [Unknown]
